FAERS Safety Report 11783124 (Version 1)
Quarter: 2015Q4

REPORT INFORMATION
  Report Type: Not Available
  Country: PL (occurrence: PL)
  Receive Date: 20151127
  Receipt Date: 20151127
  Transmission Date: 20160305
  Serious: Yes (Other)
  Sender: FDA-Public Use
  Company Number: PL-BEH-2015056093

PATIENT
  Age: 75 Year
  Sex: Male

DRUGS (1)
  1. SANDOGLOBULIN P 6G [Suspect]
     Active Substance: HUMAN IMMUNOGLOBULIN G
     Indication: OTITIS MEDIA CHRONIC
     Route: 042
     Dates: start: 20150827, end: 20150827

REACTIONS (2)
  - Seizure [Recovered/Resolved]
  - Chills [Recovered/Resolved]

NARRATIVE: CASE EVENT DATE: 20150827
